FAERS Safety Report 9299831 (Version 4)
Quarter: 2014Q2

REPORT INFORMATION
  Report Type: Report from Study
  Country: US (occurrence: US)
  Receive Date: 20121227
  Receipt Date: 20140503
  Transmission Date: 20141212
  Serious: Yes (Other)
  Sender: FDA-Public Use
  Company Number: PHEH2012US018556

PATIENT
  Age: 9 Year
  Sex: Male

DRUGS (11)
  1. AFINITOR [Suspect]
     Indication: ASTROCYTOMA, LOW GRADE
     Dosage: 7.5 MG, QD
     Route: 048
     Dates: start: 20120815, end: 20130701
  2. RISPERDAL [Suspect]
     Indication: MOOD ALTERED
     Dosage: 0.25 MG, UNK
     Route: 048
  3. RISPERDAL [Suspect]
     Dosage: (0.25MG DOSE WAS REDUCED FROM 1 1/2 TWICE A DAY TO 1 IN EVENING AND 1 1/2 IN A.M.)
     Dates: start: 20140204
  4. RISPERDAL [Suspect]
     Dosage: 2 DF, 1 DOSE IN EVENING AND 1 DOSE IN A.M
     Dates: start: 20140220
  5. CLOBAZAM [Concomitant]
  6. PREVACID [Concomitant]
     Dosage: 15 MG, QD
  7. TENEX [Concomitant]
     Indication: ABNORMAL BEHAVIOUR
     Dosage: 1 MG, BID
  8. LAMICTAL [Concomitant]
     Dosage: 1 DF, (TWO IN AM, ONE IN PM)
  9. ONFI [Concomitant]
  10. DIASTAT [Concomitant]
  11. SABRIL [Concomitant]
     Indication: CONVULSION
     Dosage: 1000 MG, BID
     Route: 048

REACTIONS (6)
  - Breast hyperplasia [Recovering/Resolving]
  - Weight increased [Recovering/Resolving]
  - Rash [Not Recovered/Not Resolved]
  - Drug level decreased [Recovering/Resolving]
  - Stomatitis [Recovering/Resolving]
  - Ear infection [Unknown]
